FAERS Safety Report 21236227 (Version 2)
Quarter: 2022Q3

REPORT INFORMATION
  Report Type: Other
  Country: US (occurrence: US)
  Receive Date: 20220822
  Receipt Date: 20220826
  Transmission Date: 20221026
  Serious: No
  Sender: FDA-Public Use
  Company Number: US-TOLMAR, INC.-22US036184

PATIENT
  Age: 10 Year
  Sex: Female

DRUGS (4)
  1. FENSOLVI [Suspect]
     Active Substance: LEUPROLIDE ACETATE
     Indication: Metabolic disorder
     Dosage: 45 MILLIGRAM, Q 6 MONTH
  2. FENSOLVI [Suspect]
     Active Substance: LEUPROLIDE ACETATE
     Indication: Endocrine disorder
  3. FENSOLVI [Suspect]
     Active Substance: LEUPROLIDE ACETATE
     Indication: Nutritional condition abnormal
  4. FENSOLVI [Suspect]
     Active Substance: LEUPROLIDE ACETATE
     Indication: Dysmenorrhoea

REACTIONS (1)
  - Off label use [Unknown]

NARRATIVE: CASE EVENT DATE: 20220815
